FAERS Safety Report 9174509 (Version 3)
Quarter: 2013Q2

REPORT INFORMATION
  Report Type: Spontaneous
  Country: JP (occurrence: JP)
  Receive Date: 20130320
  Receipt Date: 20130502
  Transmission Date: 20140414
  Serious: Yes (Life-Threatening, Hospitalization, Disabling, Other)
  Sender: FDA-Public Use
  Company Number: JP-PFIZER INC-2013085295

PATIENT
  Age: 52 Year
  Sex: Female

DRUGS (16)
  1. AZULFIDINE EN [Suspect]
     Indication: PITUITARY-DEPENDENT CUSHING^S SYNDROME
     Dosage: 1000 MG/DAY
     Route: 048
     Dates: start: 20121130, end: 20121205
  2. AZULFIDINE EN [Suspect]
     Dosage: 500 MG/DAY
     Route: 048
     Dates: start: 20121206, end: 20130103
  3. AZULFIDINE EN [Suspect]
     Dosage: 250 MG/DAY
     Route: 048
     Dates: start: 20130104, end: 20130213
  4. THIOLA [Suspect]
     Indication: ARTHRALGIA
     Dosage: 100 MG/DAY
     Route: 048
     Dates: start: 20130126, end: 20130213
  5. MOBIC [Concomitant]
     Dosage: 100 MG/DAY
     Route: 048
     Dates: start: 20121206, end: 20130213
  6. ULTRACET [Concomitant]
     Dosage: UNK
     Route: 048
     Dates: start: 20121206, end: 20130213
  7. CORTRIL [Concomitant]
     Dosage: 15 MG/DAY
     Route: 048
     Dates: start: 20120511, end: 20120523
  8. CORTRIL [Concomitant]
     Dosage: 10 MG/DAY
     Route: 048
     Dates: start: 20120524, end: 20120726
  9. CORTRIL [Concomitant]
     Dosage: 5 MG/DAY
     Route: 048
     Dates: start: 20120727, end: 20130213
  10. PREDONINE [Concomitant]
     Dosage: 6 MG/DAY
     Route: 048
     Dates: start: 20120727, end: 20120906
  11. PREDONINE [Concomitant]
     Dosage: 5 MG/DAY
     Route: 048
     Dates: start: 20120907, end: 20121004
  12. PREDONINE [Concomitant]
     Dosage: 4 MG/DAY
     Route: 048
     Dates: start: 20121005, end: 20121129
  13. PREDONINE [Concomitant]
     Dosage: 3 MG/DAY
     Route: 048
     Dates: start: 20121130, end: 20121205
  14. PREDONINE [Concomitant]
     Dosage: 2 MG/DAY
     Route: 048
     Dates: start: 20121206, end: 20130103
  15. PREDONINE [Concomitant]
     Dosage: 1 MG/DAY
     Route: 048
     Dates: start: 20130104, end: 20130214
  16. EDIROL [Concomitant]
     Dosage: 0.75 MICROG/DAY
     Dates: start: 20121206, end: 20130213

REACTIONS (2)
  - Cholestasis [Recovering/Resolving]
  - Jaundice [Recovering/Resolving]
